FAERS Safety Report 5365620-9 (Version None)
Quarter: 2007Q2

REPORT INFORMATION
  Report Type: 
  Country: None (occurrence: None)
  Receive Date: 20070621
  Receipt Date: 20070620
  Transmission Date: 20071010
  Serious: Yes (Other)
  Sender: FDA-Public Use
  Company Number: A0658217A

PATIENT
  Age: 69 Year
  Sex: Female

DRUGS (3)
  1. ALLI [Suspect]
     Route: 048
     Dates: start: 20070614, end: 20070617
  2. SINGULAIR [Concomitant]
     Indication: ASTHMA
     Route: 048
  3. ALLEGRA [Concomitant]
     Indication: MULTIPLE ALLERGIES

REACTIONS (2)
  - ASTHMA [None]
  - HYPERSENSITIVITY [None]
